FAERS Safety Report 4361045-3 (Version None)
Quarter: 2004Q2

REPORT INFORMATION
  Report Type: 
  Country: None (occurrence: None)
  Receive Date: 20040519
  Receipt Date: 20040519
  Transmission Date: 20050107
  Serious: No
  Sender: FDA-Public Use
  Company Number: None

PATIENT
  Sex: Male
  Weight: 81.8743 kg

DRUGS (5)
  1. ERBITUX 100MG (2MG/ML) IMCLONE SYSTEMS [Suspect]
     Indication: COLORECTAL CANCER METASTATIC
     Dosage: 720 MG IV; 450 MG IV
     Route: 042
     Dates: start: 20040324
  2. ERBITUX 100MG (2MG/ML) IMCLONE SYSTEMS [Suspect]
     Indication: COLORECTAL CANCER METASTATIC
     Dosage: 720 MG IV; 450 MG IV
     Route: 042
     Dates: start: 20040421
  3. . [Concomitant]
  4. GLIPIZIDE [Concomitant]
  5. OXYCONTIN [Concomitant]

REACTIONS (8)
  - DERMATITIS ACNEIFORM [None]
  - PAIN [None]
  - PURPURA [None]
  - RASH [None]
  - RASH PUSTULAR [None]
  - SCAB [None]
  - SKIN DISCOLOURATION [None]
  - SUNBURN [None]
